FAERS Safety Report 8619472-1 (Version None)
Quarter: 2012Q3

REPORT INFORMATION
  Report Type: 
  Country: None (occurrence: None)
  Receive Date: 20120824
  Receipt Date: 20120817
  Transmission Date: 20120928
  Serious: Yes (Other)
  Sender: FDA-Public Use
  Company Number: US-PFIZER INC-2012073893

PATIENT
  Age: 60 Year
  Sex: Male

DRUGS (8)
  1. ISOSORBIDE MONONITRATE [Concomitant]
     Dosage: 30 MG, 1X/DAY
  2. COUMADIN [Concomitant]
     Indication: ATRIAL FIBRILLATION
     Dosage: 5 MG, SATURDAY
  3. ALLOPURINOL [Concomitant]
     Indication: GOUT
     Dosage: 100 MG, 2X/DAY
  4. COLCHICINE [Concomitant]
     Indication: GOUT
     Dosage: 0.6 MG, AS NEEDED
  5. METOPROLOL [Concomitant]
     Indication: HYPERTENSION
     Dosage: 100 MG, 2X/DAY
  6. LIPITOR [Suspect]
     Indication: HYPERLIPIDAEMIA
     Dosage: 20 MG, 1X/DAY
     Route: 048
  7. RANEXA [Concomitant]
     Indication: ANGINA PECTORIS
     Dosage: 500 MG, 2X/DAY
  8. COUMADIN [Concomitant]
     Dosage: 6 MG, MONDAY,TUESDAY,WEDNESDAY,THURSDAY,FRIDAY, SUNDAY

REACTIONS (3)
  - DEVICE OCCLUSION [None]
  - MYOCARDIAL INFARCTION [None]
  - MALAISE [None]
